FAERS Safety Report 5661041-X (Version None)
Quarter: 2008Q1

REPORT INFORMATION
  Report Type: 
  Country: None (occurrence: None)
  Receive Date: 20080311
  Receipt Date: 20080305
  Transmission Date: 20080703
  Serious: Yes (Other)
  Sender: FDA-Public Use
  Company Number: US-BOEHRINGER INGELHEIM GMBH, GERMANY-2008-BP-03399BP

PATIENT
  Sex: Male

DRUGS (2)
  1. VIRAMUNE [Suspect]
     Dates: start: 20071201, end: 20080228
  2. BP MED [Concomitant]

REACTIONS (4)
  - PHARYNGEAL OEDEMA [None]
  - RASH GENERALISED [None]
  - SWELLING FACE [None]
  - URTICARIA [None]
